FAERS Safety Report 24145960 (Version 6)
Quarter: 2025Q2

REPORT INFORMATION
  Report Type: Report from Study
  Country: IT (occurrence: IT)
  Receive Date: 20240729
  Receipt Date: 20250422
  Transmission Date: 20250716
  Serious: Yes (Disabling)
  Sender: NOVARTIS
  Company Number: IT-002147023-NVSC2024IT106471

PATIENT
  Age: 72 Year
  Sex: Female
  Weight: 80 kg

DRUGS (16)
  1. SCEMBLIX [Suspect]
     Active Substance: ASCIMINIB HYDROCHLORIDE
     Indication: Acute lymphocytic leukaemia
     Dosage: 200 MG, BID
     Route: 048
     Dates: start: 20240402, end: 20240502
  2. SCEMBLIX [Suspect]
     Active Substance: ASCIMINIB HYDROCHLORIDE
     Indication: Philadelphia positive acute lymphocytic leukaemia
     Dosage: 80 MG, BID
     Route: 048
     Dates: start: 20240515, end: 20240707
  3. SCEMBLIX [Suspect]
     Active Substance: ASCIMINIB HYDROCHLORIDE
     Dosage: 80 MG, BID
     Route: 048
     Dates: start: 20240723
  4. SCEMBLIX [Suspect]
     Active Substance: ASCIMINIB HYDROCHLORIDE
     Dosage: 40 MG, BID
     Route: 048
     Dates: start: 20240916, end: 20241216
  5. SCEMBLIX [Suspect]
     Active Substance: ASCIMINIB HYDROCHLORIDE
     Dosage: 40 MG, BID
     Route: 048
     Dates: start: 20241230, end: 20250223
  6. NEBIVOLOL HYDROCHLORIDE [Concomitant]
     Active Substance: NEBIVOLOL HYDROCHLORIDE
     Indication: Hypertension
     Route: 065
     Dates: end: 20240502
  7. OLMESARTAN MEDOXOMIL [Concomitant]
     Active Substance: OLMESARTAN MEDOXOMIL
     Indication: Hypertension
     Route: 065
     Dates: end: 20240502
  8. PLAVIX [Concomitant]
     Active Substance: CLOPIDOGREL BISULFATE
     Indication: Hypertension
     Route: 065
     Dates: end: 20240502
  9. PANTOPRAZOLE SODIUM [Concomitant]
     Active Substance: PANTOPRAZOLE SODIUM
     Indication: Abdominal discomfort
     Route: 065
     Dates: end: 20240502
  10. PREDNISONE [Concomitant]
     Active Substance: PREDNISONE
     Indication: Rheumatic disorder
     Route: 065
     Dates: end: 20240502
  11. LASIX [Concomitant]
     Active Substance: FUROSEMIDE
     Indication: Hypertension
     Route: 065
     Dates: end: 20240502
  12. TACHIPIRINA [Concomitant]
     Active Substance: ACETAMINOPHEN
     Indication: Rheumatic disorder
     Route: 065
     Dates: end: 20240502
  13. BISOPROLOL FUMARATE [Concomitant]
     Active Substance: BISOPROLOL FUMARATE
     Indication: Hypertension
     Route: 065
     Dates: end: 20240502
  14. PLAQUENIL [Concomitant]
     Active Substance: HYDROXYCHLOROQUINE SULFATE
     Indication: Rheumatoid arthritis
     Route: 065
     Dates: end: 20240502
  15. TRIAZOLAM [Concomitant]
     Active Substance: TRIAZOLAM
     Indication: Insomnia
     Route: 065
     Dates: end: 20240502
  16. CHOLECALCIFEROL [Concomitant]
     Active Substance: CHOLECALCIFEROL
     Indication: Vitamin D deficiency
     Dosage: 25000 U.I D3, QW
     Route: 065
     Dates: end: 20240502

REACTIONS (8)
  - Headache [Recovered/Resolved]
  - Arthralgia [Recovered/Resolved]
  - Abdominal pain [Recovered/Resolved]
  - Headache [Recovered/Resolved]
  - Musculoskeletal pain [Recovered/Resolved]
  - Pain in extremity [Recovering/Resolving]
  - Pain [Recovering/Resolving]
  - COVID-19 [Recovered/Resolved]

NARRATIVE: CASE EVENT DATE: 20240501
